FAERS Safety Report 17969522 (Version 1)
Quarter: 2020Q3

REPORT INFORMATION
  Report Type: Spontaneous
  Country: ES (occurrence: ES)
  Receive Date: 20200701
  Receipt Date: 20200701
  Transmission Date: 20201103
  Serious: Yes (Other)
  Sender: FDA-Public Use
  Company Number: ES-MYLANLABS-2020M1059295

PATIENT
  Age: 84 Year
  Sex: Female
  Weight: 50 kg

DRUGS (20)
  1. ALPRAZOLAM. [Concomitant]
     Active Substance: ALPRAZOLAM
     Dosage: UNK
  2. SINEMET PLUS [Concomitant]
     Active Substance: CARBIDOPA\LEVODOPA
     Dosage: UNK
  3. SERETIDE [Concomitant]
     Active Substance: FLUTICASONE PROPIONATE\SALMETEROL XINAFOATE
     Dosage: UNK
  4. NOCTAMID [Concomitant]
     Active Substance: LORMETAZEPAM
     Dosage: UNK
  5. AZITHROMYCIN ANHYDROUS. [Suspect]
     Active Substance: AZITHROMYCIN ANHYDROUS
     Indication: COVID-19 PNEUMONIA
     Dosage: 500 MG CADA 24 HORAS
     Route: 048
     Dates: start: 20200406, end: 20200407
  6. DEPRAX                             /00447702/ [Concomitant]
     Active Substance: TRAZODONE HYDROCHLORIDE
     Dosage: UNK
  7. BISOPROLOL [Concomitant]
     Active Substance: BISOPROLOL
     Dosage: UNK
  8. HUMALOG [Concomitant]
     Active Substance: INSULIN LISPRO
     Dosage: UNK
  9. OMEPRAZOL                          /00661201/ [Concomitant]
     Active Substance: OMEPRAZOLE
     Dosage: UNK
  10. FUROSEMIDA                         /00032601/ [Concomitant]
     Active Substance: FUROSEMIDE
     Dosage: UNK
  11. LOPINAVIR AND RITONAVIR 200MG/50MG TABLETS [Suspect]
     Active Substance: LOPINAVIR\RITONAVIR
     Indication: COVID-19 PNEUMONIA
     Dosage: 400 MG C/ 12H
     Route: 048
     Dates: start: 20200406, end: 20200407
  12. RHINOMER [Concomitant]
     Dosage: UNK
  13. SINTROM [Concomitant]
     Active Substance: ACENOCOUMAROL
     Dosage: UNK
  14. DUPHALAC [Concomitant]
     Active Substance: LACTULOSE
     Dosage: UNK
  15. ESCITALOPRAM [Concomitant]
     Active Substance: ESCITALOPRAM OXALATE
     Dosage: UNK
  16. ATROVENT [Concomitant]
     Active Substance: IPRATROPIUM BROMIDE
     Dosage: UNK
  17. HIDROXICLOROQUINA                  /00072601/ [Suspect]
     Active Substance: HYDROXYCHLOROQUINE
     Indication: COVID-19 PNEUMONIA
     Dosage: 400 MG C/12 HORAS SEGUIDO DE 200 MG C/12 HORAS
     Route: 048
     Dates: start: 20200406
  18. CEFTRIAXONA                        /00672201/ [Suspect]
     Active Substance: CEFTRIAXONE
     Indication: COVID-19 PNEUMONIA
     Dosage: 2 GRAM, QD
     Route: 042
     Dates: start: 20200406
  19. MANIDON [Concomitant]
     Active Substance: VERAPAMIL HYDROCHLORIDE
     Dosage: UNK
  20. PARACETAMOL [Concomitant]
     Active Substance: ACETAMINOPHEN
     Dosage: UNK

REACTIONS (2)
  - Electrocardiogram QT prolonged [Recovered/Resolved]
  - Long QT syndrome [Recovered/Resolved]

NARRATIVE: CASE EVENT DATE: 20200407
